FAERS Safety Report 5013268-8 (Version None)
Quarter: 2006Q2

REPORT INFORMATION
  Report Type: 
  Country: None (occurrence: None)
  Receive Date: 20060530
  Receipt Date: 20060403
  Transmission Date: 20061013
  Serious: No
  Sender: FDA-Public Use
  Company Number: US-GLAXOSMITHKLINE-A0600124A

PATIENT
  Age: 67 Year
  Sex: Male

DRUGS (23)
  1. WELLBUTRIN XL [Suspect]
     Indication: DEPRESSION
     Dosage: 150MG PER DAY
     Route: 048
     Dates: start: 20060314
  2. PAXIL [Concomitant]
  3. COZAAR [Concomitant]
  4. GLUCOPHAGE [Concomitant]
  5. SINGULAIR [Concomitant]
  6. PLAVIX [Concomitant]
  7. PROTONIX [Concomitant]
  8. LOPID [Concomitant]
  9. LASIX [Concomitant]
  10. LANTUS [Concomitant]
  11. NORVASC [Concomitant]
  12. ASPIRIN [Concomitant]
  13. ATENOLOL [Concomitant]
  14. DIGOXIN [Concomitant]
  15. PERSANTINE [Concomitant]
  16. POTASSIUM [Concomitant]
  17. SPIRONOLACTONE [Concomitant]
  18. VERAPAMIL [Concomitant]
  19. REGULAR INSULIN [Concomitant]
  20. NPH INSULIN [Concomitant]
  21. CLARITIN [Concomitant]
  22. ISOSORBIDE [Concomitant]
  23. GLYBURIDE [Concomitant]

REACTIONS (3)
  - ANXIETY [None]
  - NERVOUSNESS [None]
  - TREMOR [None]
